FAERS Safety Report 8041035-X (Version None)
Quarter: 2012Q1

REPORT INFORMATION
  Report Type: 
  Country: None (occurrence: None)
  Receive Date: 20120109
  Receipt Date: 20120103
  Transmission Date: 20120608
  Serious: Yes (Other)
  Sender: FDA-Public Use
  Company Number: AUR-APL-2012-00199

PATIENT
  Age: 34 Year
  Sex: Male
  Weight: 86.1834 kg

DRUGS (3)
  1. PREDNISONE TAB [Concomitant]
  2. MULTIVITAMIN (VIGRAN) [Concomitant]
  3. SIMVASTATIN [Suspect]
     Indication: HYPERLIPIDAEMIA
     Dosage: (40 MG, 1 D), ORAL
     Route: 048
     Dates: start: 20080101

REACTIONS (2)
  - DERMATITIS ALLERGIC [None]
  - ALLERGY TO CHEMICALS [None]
